FAERS Safety Report 5669968-X (Version None)
Quarter: 2008Q1

REPORT INFORMATION
  Report Type: 
  Country: None (occurrence: None)
  Receive Date: 20080312
  Receipt Date: 20080302
  Transmission Date: 20080703
  Serious: Yes (Other)
  Sender: FDA-Public Use
  Company Number: 18557

PATIENT
  Age: 52 Year
  Sex: Female

DRUGS (8)
  1. CYTARABINE [Suspect]
     Indication: ACUTE MYELOID LEUKAEMIA
  2. CYTARABINE [Suspect]
     Indication: ACUTE MYELOID LEUKAEMIA
     Dosage: 200 MG/M2 OTH
  3. CYTARABINE [Suspect]
     Indication: ACUTE MYELOID LEUKAEMIA
     Dosage: 2 G/M2 OTH
  4. MITOXANTRONE [Suspect]
     Indication: ACUTE MYELOID LEUKAEMIA
     Dosage: 10 MG/M2 OTHER
  5. ETOPOSIDE [Suspect]
     Indication: ACUTE MYELOID LEUKAEMIA
     Dosage: 100 MG/M2 OTHER
  6. FLUDARABINE [Suspect]
     Indication: ACUTE MYELOID LEUKAEMIA
  7. AMSACRINE [Suspect]
     Indication: ACUTE MYELOID LEUKAEMIA
     Dosage: 100 MG/M2
  8. NEUPOGEN [Suspect]
     Indication: ACUTE MYELOID LEUKAEMIA

REACTIONS (3)
  - NEUTROPENIA [None]
  - SINUSITIS FUNGAL [None]
  - VITH NERVE PARALYSIS [None]
